FAERS Safety Report 5228930-1 (Version None)
Quarter: 2007Q1

REPORT INFORMATION
  Report Type: 
  Country: None (occurrence: None)
  Receive Date: 20070205
  Receipt Date: 20070122
  Transmission Date: 20070707
  Serious: Yes (Other)
  Sender: FDA-Public Use
  Company Number: 2007AC00198

PATIENT
  Age: 76 Year
  Sex: Male

DRUGS (22)
  1. ROPIVACAINE [Suspect]
     Indication: ANALGESIC EFFECT
     Dosage: BOLUS
     Route: 008
  2. ROPIVACAINE [Suspect]
     Route: 008
  3. ROPIVACAINE [Suspect]
     Dosage: BOLUS
     Route: 008
  4. ROPIVACAINE [Suspect]
     Dosage: EPIDURAL RE-STARTED.
     Route: 008
  5. SUFENTANIL CITRATE [Suspect]
     Indication: ANALGESIC EFFECT
     Dosage: BOLUS
     Route: 008
  6. SUFENTANIL CITRATE [Suspect]
     Indication: INDUCTION OF ANAESTHESIA
     Dosage: BOLUS
     Route: 008
  7. SUFENTANIL CITRATE [Suspect]
     Dosage: ANESTHETIC INDUCTION
  8. SUFENTANIL CITRATE [Suspect]
     Dosage: ANESTHETIC INDUCTION
  9. SUFENTANIL CITRATE [Suspect]
     Route: 008
  10. SUFENTANIL CITRATE [Suspect]
     Route: 008
  11. SUFENTANIL CITRATE [Suspect]
     Dosage: BOLUS
     Route: 008
  12. SUFENTANIL CITRATE [Suspect]
     Dosage: BOLUS
     Route: 008
  13. SUFENTANIL CITRATE [Suspect]
     Dosage: EPIDURAL RESTARTED.
     Route: 008
  14. SUFENTANIL CITRATE [Suspect]
     Dosage: EPIDURAL RESTARTED.
     Route: 008
  15. LIDOCAINE W/ EPINEPHRINE [Concomitant]
     Indication: ANAESTHESIA
     Dosage: TEST DOSE.
  16. ETOMIDATE [Concomitant]
     Indication: INDUCTION OF ANAESTHESIA
  17. PROPOFOL [Concomitant]
     Indication: INDUCTION OF ANAESTHESIA
  18. ATRACURIUM BESYLATE [Concomitant]
     Indication: NEUROMUSCULAR BLOCKADE
  19. ISOFLURANE [Concomitant]
     Indication: MAINTENANCE OF ANAESTHESIA
     Route: 055
  20. EPHEDRINE SUL CAP [Concomitant]
     Indication: HYPOTENSION
  21. CRYSTALLOIDS [Concomitant]
     Indication: HYPOTENSION
     Route: 042
  22. HEPARIN CALCIUM [Concomitant]
     Indication: THROMBOSIS PROPHYLAXIS
     Route: 058

REACTIONS (1)
  - SPINAL CORD ISCHAEMIA [None]
